FAERS Safety Report 21357268 (Version 3)
Quarter: 2022Q4

REPORT INFORMATION
  Report Type: Spontaneous
  Country: BR (occurrence: BR)
  Receive Date: 20220921
  Receipt Date: 20221121
  Transmission Date: 20230112
  Serious: Yes (Other)
  Sender: FDA-Public Use
  Company Number: BR-NOVARTISPH-NVSC2022BR211774

PATIENT
  Sex: Male

DRUGS (2)
  1. VILDAGLIPTIN [Suspect]
     Active Substance: VILDAGLIPTIN
     Indication: Diabetes mellitus
     Dosage: 50 MG
     Route: 065
  2. METFORMIN HYDROCHLORIDE\VILDAGLIPTIN [Suspect]
     Active Substance: METFORMIN HYDROCHLORIDE\VILDAGLIPTIN
     Indication: Diabetes mellitus
     Dosage: 50/850 MG
     Route: 065

REACTIONS (10)
  - Nephrolithiasis [Recovered/Resolved]
  - Diabetes mellitus inadequate control [Unknown]
  - Ureteric haemorrhage [Unknown]
  - Blood glucose fluctuation [Not Recovered/Not Resolved]
  - Hypertension [Not Recovered/Not Resolved]
  - COVID-19 [Unknown]
  - Stress [Unknown]
  - Blood pressure abnormal [Unknown]
  - Cholelithiasis [Unknown]
  - Pain [Unknown]
